FAERS Safety Report 10879311 (Version 2)
Quarter: 2015Q2

REPORT INFORMATION
  Report Type: Spontaneous
  Country: JP (occurrence: JP)
  Receive Date: 20150302
  Receipt Date: 20150417
  Transmission Date: 20150821
  Serious: No
  Sender: FDA-Public Use
  Company Number: JP-GLAXOSMITHKLINE-JP2015JPN023660

PATIENT
  Age: 54 Year
  Sex: Male

DRUGS (4)
  1. EPZICOM [Suspect]
     Active Substance: ABACAVIR SULFATE\LAMIVUDINE
     Indication: HIV INFECTION
     Dosage: UNK UNK, QD
     Route: 048
     Dates: start: 20141220, end: 20150220
  2. TIVICAY [Suspect]
     Active Substance: DOLUTEGRAVIR SODIUM
     Indication: HIV INFECTION
     Dosage: 50 MG, QD
     Route: 048
     Dates: start: 20141220, end: 20150220
  3. CRESTOR [Concomitant]
     Active Substance: ROSUVASTATIN CALCIUM
     Dosage: 2.5 MG, QD
  4. EPADEL [Concomitant]
     Active Substance: ICOSAPENT
     Dosage: 900 MG, TID

REACTIONS (5)
  - Hepatic function abnormal [Recovering/Resolving]
  - Malaise [Recovered/Resolved]
  - Hypersensitivity [Unknown]
  - Face oedema [Recovered/Resolved]
  - Chills [Unknown]

NARRATIVE: CASE EVENT DATE: 201501
